FAERS Safety Report 6212715-3 (Version None)
Quarter: 2009Q2

REPORT INFORMATION
  Report Type: 
  Country: None (occurrence: None)
  Receive Date: 20090603
  Receipt Date: 20090526
  Transmission Date: 20091009
  Serious: Yes (Disabling)
  Sender: FDA-Public Use
  Company Number: GB-AMGEN-QUU348640

PATIENT
  Age: 40 Year
  Sex: Female

DRUGS (9)
  1. ARANESP [Suspect]
     Indication: ANAEMIA
     Dates: start: 20070725, end: 20090423
  2. ATENOLOL [Concomitant]
     Route: 048
     Dates: start: 20010511
  3. ATORVASTATIN CALCIUM [Concomitant]
     Route: 048
     Dates: start: 20061011
  4. DOMPERIDONE [Concomitant]
     Route: 048
     Dates: start: 20060419
  5. FOLIC ACID [Concomitant]
     Route: 048
     Dates: start: 20060510
  6. LANSOPRAZOLE [Concomitant]
     Route: 048
     Dates: start: 20060415
  7. LISINOPRIL [Concomitant]
     Route: 048
     Dates: start: 20090107
  8. SODIUM BICARBONATE [Concomitant]
     Route: 048
     Dates: start: 20080219
  9. SULFASALAZINE [Concomitant]
     Route: 048
     Dates: start: 20081223

REACTIONS (1)
  - ARTHRITIS [None]
